FAERS Safety Report 10530699 (Version 1)
Quarter: 2014Q4

REPORT INFORMATION
  Report Type: Spontaneous
  Country: NG (occurrence: NG)
  Receive Date: 20141021
  Receipt Date: 20141021
  Transmission Date: 20150528
  Serious: Yes (Other)
  Sender: FDA-Public Use
  Company Number: NG-WATSON-2014-22189

PATIENT

DRUGS (1)
  1. PREDNISOLONE (UNKNOWN) [Suspect]
     Active Substance: PREDNISOLONE
     Indication: APLASTIC ANAEMIA
     Dosage: 60 MG DAILY FOR 5 DAYS EACH CYCLE
     Route: 065

REACTIONS (2)
  - Diabetes mellitus [Recovered/Resolved with Sequelae]
  - Hypertension [Unknown]
